FAERS Safety Report 17127254 (Version 4)
Quarter: 2020Q1

REPORT INFORMATION
  Report Type: Spontaneous
  Country: CA (occurrence: CA)
  Receive Date: 20191209
  Receipt Date: 20200226
  Transmission Date: 20200409
  Serious: Yes (Other)
  Sender: FDA-Public Use
  Company Number: CA-ROCHE-2491046

PATIENT
  Age: 32 Year
  Sex: Female

DRUGS (5)
  1. ZADITEN [Concomitant]
     Active Substance: KETOTIFEN FUMARATE
  2. XOLAIR [Suspect]
     Active Substance: OMALIZUMAB
     Route: 058
     Dates: start: 20191023
  3. MONTELUKAST [Concomitant]
     Active Substance: MONTELUKAST SODIUM
     Indication: ASTHMA
  4. XOLAIR [Suspect]
     Active Substance: OMALIZUMAB
     Indication: CHRONIC SPONTANEOUS URTICARIA
     Route: 058
     Dates: start: 20180306
  5. XOLAIR [Suspect]
     Active Substance: OMALIZUMAB
     Route: 058
     Dates: start: 201908

REACTIONS (12)
  - Presyncope [Unknown]
  - Heart rate increased [Unknown]
  - Urticaria [Not Recovered/Not Resolved]
  - Postural orthostatic tachycardia syndrome [Unknown]
  - Erythema [Unknown]
  - Asthma [Unknown]
  - Dysstasia [Unknown]
  - Malaise [Unknown]
  - Autonomic nervous system imbalance [Unknown]
  - Pruritus [Unknown]
  - Inappropriate schedule of product administration [Unknown]
  - Dizziness [Unknown]

NARRATIVE: CASE EVENT DATE: 2019
